FAERS Safety Report 16107585 (Version 6)
Quarter: 2019Q3

REPORT INFORMATION
  Report Type: Spontaneous
  Country: FR (occurrence: FR)
  Receive Date: 20190322
  Receipt Date: 20190830
  Transmission Date: 20191004
  Serious: Yes (Life-Threatening, Other)
  Sender: FDA-Public Use
  Company Number: FR-009507513-1903FRA008072

PATIENT
  Age: 65 Year
  Sex: Male
  Weight: 120 kg

DRUGS (7)
  1. PIPERACILLIN AND TAZOBACTAM [Suspect]
     Active Substance: PIPERACILLIN SODIUM\TAZOBACTAM SODIUM
     Indication: OSTEITIS
     Dosage: 20 OT, UNK
     Route: 042
     Dates: start: 20190123, end: 20190127
  2. GENTAMICIN SULFATE. [Interacting]
     Active Substance: GENTAMICIN SULFATE
     Indication: OSTEITIS
     Dosage: 450 MG, UNK
     Route: 042
     Dates: start: 20190123, end: 20190123
  3. AMIKACIN SULFATE. [Interacting]
     Active Substance: AMIKACIN SULFATE
     Indication: OSTEITIS
     Dosage: UNK
     Route: 042
     Dates: start: 20190123, end: 20190123
  4. CUBICIN [Suspect]
     Active Substance: DAPTOMYCIN
     Indication: OSTEITIS
     Dosage: 1200 G, UNK
     Route: 042
     Dates: start: 20190123, end: 20190123
  5. VANCOMYCINE SANDOZ [Interacting]
     Active Substance: VANCOMYCIN
     Indication: OSTEITIS
     Dosage: 6 G (3 G AND 3 G IN BOLUS)
     Route: 042
     Dates: start: 20190123, end: 20190125
  6. PIPERACILLIN AND TAZOBACTAM [Suspect]
     Active Substance: PIPERACILLIN SODIUM\TAZOBACTAM SODIUM
     Dosage: 12 OT, UNK
     Route: 042
  7. IOMERON [Suspect]
     Active Substance: IOMEPROL
     Indication: SCAN WITH CONTRAST
     Dosage: UNK
     Route: 042
     Dates: start: 20190124, end: 20190124

REACTIONS (2)
  - Condition aggravated [Unknown]
  - Acute kidney injury [Recovered/Resolved]

NARRATIVE: CASE EVENT DATE: 20190125
